FAERS Safety Report 9143351 (Version 2)
Quarter: 2013Q1

REPORT INFORMATION
  Report Type: Spontaneous
  Country: US (occurrence: US)
  Receive Date: 20130306
  Receipt Date: 20130311
  Transmission Date: 20140127
  Serious: Yes (Hospitalization, Other)
  Sender: FDA-Public Use
  Company Number: US-009507513-1210USA010365

PATIENT
  Sex: Female
  Weight: 95.24 kg

DRUGS (3)
  1. NUVARING [Suspect]
     Indication: CONTRACEPTION
     Dosage: UNK
     Route: 067
     Dates: start: 201008, end: 20101019
  2. ALBUTEROL [Concomitant]
     Indication: ASTHMA
     Dosage: UNK, PRN
     Route: 055
     Dates: start: 1996
  3. PROAIR (ALBUTEROL SULFATE) [Concomitant]
     Indication: ASTHMA
     Dosage: UNK, PRN
     Route: 055
     Dates: start: 1996, end: 2012

REACTIONS (8)
  - Pulmonary embolism [Unknown]
  - Deep vein thrombosis [Unknown]
  - Road traffic accident [Unknown]
  - Fibrin D dimer increased [Unknown]
  - Migraine [Unknown]
  - Aortic embolus [Unknown]
  - Anticoagulation drug level below therapeutic [Unknown]
  - Chest pain [Unknown]
